FAERS Safety Report 9636409 (Version 2)
Quarter: 2013Q4

REPORT INFORMATION
  Report Type: Spontaneous
  Country: DK (occurrence: AU)
  Receive Date: 20131021
  Receipt Date: 20131113
  Transmission Date: 20140711
  Serious: Yes (Life-Threatening, Other)
  Sender: FDA-Public Use
  Company Number: AU-FRI-1000050321

PATIENT
  Age: 42 Year
  Sex: Female

DRUGS (6)
  1. ESCITALOPRAM [Suspect]
     Indication: DEPRESSION
     Dosage: 30 MG
     Route: 048
  2. METHYLPREDNISOLONE [Interacting]
     Indication: PRODUCT USED FOR UNKNOWN INDICATION
     Dosage: 40 MG
  3. CHAMPIX [Interacting]
     Indication: PRODUCT USED FOR UNKNOWN INDICATION
     Dosage: 1 DF
     Route: 048
     Dates: start: 20071107, end: 20071202
  4. SODIUM VALPROATE [Interacting]
     Indication: AFFECTIVE DISORDER
     Dosage: 1.5 GRAM
     Route: 048
  5. ALPRAZOLAM [Concomitant]
     Route: 048
  6. RABEPRAZOLE SODIUM [Concomitant]
     Dosage: 20 MG
     Route: 048

REACTIONS (5)
  - Suicidal behaviour [Recovered/Resolved]
  - Agitation [Recovered/Resolved]
  - Depression [Unknown]
  - Homicidal ideation [Recovered/Resolved]
  - Drug interaction [Recovered/Resolved]
